FAERS Safety Report 16460276 (Version 3)
Quarter: 2019Q3

REPORT INFORMATION
  Report Type: Spontaneous
  Country: JP (occurrence: JP)
  Receive Date: 20190620
  Receipt Date: 20190705
  Transmission Date: 20191004
  Serious: Yes (Hospitalization, Other)
  Sender: FDA-Public Use
  Company Number: JP-ASTRAZENECA-2019SE88504

PATIENT
  Age: 77 Year
  Sex: Female

DRUGS (3)
  1. NEXIUM [Suspect]
     Active Substance: ESOMEPRAZOLE MAGNESIUM
     Dosage: 20.0MG UNKNOWN
     Route: 048
  2. TAKECAB [Suspect]
     Active Substance: VONOPRAZAN FUMURATE
     Route: 048
  3. DICLOFENAC SODIUM. [Suspect]
     Active Substance: DICLOFENAC SODIUM
     Indication: BACK PAIN
     Dosage: 75.0MG UNKNOWN
     Route: 065

REACTIONS (3)
  - Hypoalbuminaemia [Recovered/Resolved]
  - Iron deficiency anaemia [Recovered/Resolved]
  - Small intestinal stenosis [Recovered/Resolved]
